APPROVED DRUG PRODUCT: ORASONE
Active Ingredient: PREDNISONE
Strength: 10MG
Dosage Form/Route: TABLET;ORAL
Application: A083009 | Product #003
Applicant: SOLVAY PHARMACEUTICALS
Approved: Approved Prior to Jan 1, 1982 | RLD: No | RS: No | Type: DISCN